FAERS Safety Report 19728237 (Version 1)
Quarter: 2021Q3

REPORT INFORMATION
  Report Type: Spontaneous
  Country: US (occurrence: US)
  Receive Date: 20210820
  Receipt Date: 20210820
  Transmission Date: 20211014
  Serious: Yes (Other)
  Sender: FDA-Public Use
  Company Number: US-ABBVIE-21K-163-4041117-00

PATIENT
  Sex: Female

DRUGS (3)
  1. XELJANZ [Suspect]
     Active Substance: TOFACITINIB CITRATE
     Indication: COLITIS ULCERATIVE
     Route: 048
     Dates: start: 2019
  2. XELJANZ [Suspect]
     Active Substance: TOFACITINIB CITRATE
     Route: 048
  3. HUMIRA [Suspect]
     Active Substance: ADALIMUMAB
     Indication: PRODUCT USED FOR UNKNOWN INDICATION
     Route: 058

REACTIONS (13)
  - Frequent bowel movements [Unknown]
  - Precancerous cells present [Unknown]
  - Haematochezia [Unknown]
  - Colitis ulcerative [Unknown]
  - Infrequent bowel movements [Unknown]
  - Gastritis [Unknown]
  - Drug ineffective [Not Recovered/Not Resolved]
  - Faeces soft [Unknown]
  - Sleep disorder [Recovered/Resolved]
  - Polyp [Unknown]
  - Product communication issue [Unknown]
  - Muscle spasms [Unknown]
  - Constipation [Unknown]

NARRATIVE: CASE EVENT DATE: 202107
